FAERS Safety Report 4848671-X (Version None)
Quarter: 2005Q4

REPORT INFORMATION
  Report Type: 
  Country: None (occurrence: None)
  Receive Date: 20051206
  Receipt Date: 20051118
  Transmission Date: 20060501
  Serious: Yes (Hospitalization)
  Sender: FDA-Public Use
  Company Number: FR200511001830

PATIENT
  Age: 69 Year
  Sex: Female

DRUGS (8)
  1. GEMZAR [Suspect]
     Indication: BILE DUCT CANCER
     Dosage: INTRAVENOUS
     Route: 042
     Dates: end: 20050817
  2. ELOXATIN /GFR/(OXALIPLATIN) [Concomitant]
  3. COUMADIN [Concomitant]
  4. COAPROVEL /GFR/ (HYDROCHLOROTHIAZIDE, IRBESARTAN) [Concomitant]
  5. CRESTOR [Concomitant]
  6. CORDIPATCH (GLYCERYL TRINITRATE) [Concomitant]
  7. LERCAN (LERCANIDIPINE HYDROCHLORIDE) [Concomitant]
  8. INIPOMP (PANTOPRAZOLE) [Concomitant]

REACTIONS (2)
  - DYSARTHRIA [None]
  - PARAESTHESIA [None]
